FAERS Safety Report 17719192 (Version 2)
Quarter: 2020Q3

REPORT INFORMATION
  Report Type: Report from Study
  Country: CA (occurrence: CA)
  Receive Date: 20200428
  Receipt Date: 20200803
  Transmission Date: 20201102
  Serious: Yes (Other)
  Sender: FDA-Public Use
  Company Number: CA-JNJFOC-20200340582

PATIENT
  Age: 45 Year
  Sex: Female

DRUGS (2)
  1. STELARA [Suspect]
     Active Substance: USTEKINUMAB
     Indication: CROHN^S DISEASE
     Route: 058
     Dates: start: 20191204
  2. STELARA [Suspect]
     Active Substance: USTEKINUMAB

REACTIONS (6)
  - Post-traumatic stress disorder [Recovered/Resolved]
  - Vomiting [Unknown]
  - Nasal congestion [Not Recovered/Not Resolved]
  - Syringe issue [Unknown]
  - Lower respiratory tract infection [Recovered/Resolved]
  - Intercepted medication error [Unknown]

NARRATIVE: CASE EVENT DATE: 202003
